FAERS Safety Report 4531492-5 (Version None)
Quarter: 2004Q4

REPORT INFORMATION
  Report Type: 
  Country: None (occurrence: None)
  Receive Date: 20041220
  Receipt Date: 20041122
  Transmission Date: 20050328
  Serious: Yes (Death)
  Sender: FDA-Public Use
  Company Number: 2004-11-0933

PATIENT
  Sex: Male

DRUGS (1)
  1. BUPRENORPHINE HCL [Suspect]
     Indication: DRUG USE FOR UNKNOWN INDICATION
     Dosage: DOSAGE UNKNOWN
     Route: 065

REACTIONS (1)
  - COMPLETED SUICIDE [None]
